FAERS Safety Report 8214696-X (Version None)
Quarter: 2012Q1

REPORT INFORMATION
  Report Type: 
  Country: None (occurrence: None)
  Receive Date: 20120316
  Receipt Date: 20120308
  Transmission Date: 20120608
  Serious: Yes (Other)
  Sender: FDA-Public Use
  Company Number: JP-ASTELLAS-2012JP001867

PATIENT
  Age: 87 Year
  Sex: Male

DRUGS (1)
  1. VESICARE [Suspect]
     Dosage: 10 MG, UNKNOWN/D
     Route: 048

REACTIONS (1)
  - AMYLASE INCREASED [None]
